FAERS Safety Report 19280909 (Version 1)
Quarter: 2021Q2

REPORT INFORMATION
  Report Type: Spontaneous
  Country: US (occurrence: US)
  Receive Date: 20210520
  Receipt Date: 20210520
  Transmission Date: 20210717
  Serious: Yes (Death, Hospitalization)
  Sender: FDA-Public Use
  Company Number: US-TEVA-2021-US-1912430

PATIENT
  Age: 46 Year
  Sex: Male

DRUGS (3)
  1. MELPHALAN. [Suspect]
     Active Substance: MELPHALAN
     Indication: UVEAL MELANOMA
     Dosage: HIGH DOSE
     Route: 050
  2. NIVOLUMAB [Suspect]
     Active Substance: NIVOLUMAB
     Indication: UVEAL MELANOMA
     Route: 065
  3. MYCOPHENOLATE MOFETIL. [Suspect]
     Active Substance: MYCOPHENOLATE MOFETIL
     Indication: HEPATITIS
     Route: 042

REACTIONS (7)
  - Acute kidney injury [Fatal]
  - Hyperkalaemia [Fatal]
  - Hepatitis [Fatal]
  - Cardio-respiratory arrest [Fatal]
  - Acute hepatic failure [Fatal]
  - Off label use [Unknown]
  - Metabolic acidosis [Fatal]
